FAERS Safety Report 7797123-6 (Version None)
Quarter: 2011Q4

REPORT INFORMATION
  Report Type: 
  Country: None (occurrence: None)
  Receive Date: 20111005
  Receipt Date: 20111004
  Transmission Date: 20120403
  Serious: Yes (Hospitalization)
  Sender: FDA-Public Use
  Company Number: NL-ROCHE-803323

PATIENT
  Sex: Male
  Weight: 81 kg

DRUGS (9)
  1. CISPLATIN [Suspect]
     Indication: B-CELL LYMPHOMA
     Dosage: LAST DOSE PRIOR TO SAE: 22 FEB 2011.
     Route: 042
  2. DEXAMETHASONE [Suspect]
     Indication: B-CELL LYMPHOMA
     Dosage: LAST DOSE PRIOR TO SAE: 25 FEBRUARY 2011. TEMPORARILY INTERRUPTED.
     Route: 042
  3. MABTHERA [Suspect]
     Indication: B-CELL LYMPHOMA
     Dosage: LAST DOSE PRIOR TO SAE: 26 FEB 2011.
     Route: 042
  4. CYTARABINE [Suspect]
     Indication: B-CELL LYMPHOMA
     Dosage: LAST DOSE PRIOR TO SAE: 23 FEB 2011
     Route: 042
  5. OMEPRAZOLE [Concomitant]
     Route: 048
  6. BUSULFAN [Suspect]
     Indication: B-CELL LYMPHOMA
     Route: 048
  7. PHENYTOIN [Suspect]
     Indication: B-CELL LYMPHOMA
     Route: 048
     Dates: start: 20110617
  8. CYCLOPHOSPHAMIDE [Suspect]
     Indication: B-CELL LYMPHOMA
     Route: 042
  9. METHOTREXATE [Suspect]
     Indication: B-CELL LYMPHOMA

REACTIONS (1)
  - CONVULSION [None]
